FAERS Safety Report 12080592 (Version 1)
Quarter: 2016Q1

REPORT INFORMATION
  Report Type: Spontaneous
  Country: US (occurrence: None)
  Receive Date: 20160212
  Receipt Date: 20160212
  Transmission Date: 20160526
  Serious: Yes (Life-Threatening)
  Sender: FDA-Public Use
  Company Number: None

PATIENT
  Age: 56 Year
  Sex: Female
  Weight: 75.75 kg

DRUGS (6)
  1. FLUOXETINE HCL [Concomitant]
     Active Substance: FLUOXETINE HYDROCHLORIDE
  2. HYDROCHLOROTHIAZIDE. [Concomitant]
     Active Substance: HYDROCHLOROTHIAZIDE
  3. LEVOFLOXACIN 500MG ZYDUS [Suspect]
     Active Substance: LEVOFLOXACIN
     Indication: MAMMOPLASTY
     Route: 048
     Dates: start: 20160126, end: 20160127
  4. TYLENOL [Concomitant]
     Active Substance: ACETAMINOPHEN
  5. ARIMIDEX [Concomitant]
     Active Substance: ANASTROZOLE
  6. CALCIUM CITRATE WITH D3 [Concomitant]

REACTIONS (2)
  - Hypersensitivity [None]
  - Skin exfoliation [None]

NARRATIVE: CASE EVENT DATE: 20160126
